FAERS Safety Report 7679909-1 (Version None)
Quarter: 2011Q3

REPORT INFORMATION
  Report Type: 
  Country: None (occurrence: None)
  Receive Date: 20110812
  Receipt Date: 20110805
  Transmission Date: 20111222
  Serious: Yes (Hospitalization, Other)
  Sender: FDA-Public Use
  Company Number: IT-PFIZER INC-2011180791

PATIENT
  Age: 51 Year
  Sex: Male

DRUGS (4)
  1. SULFASALAZINE [Suspect]
     Indication: PSORIATIC ARTHROPATHY
     Dosage: 2 G DAILY
     Route: 048
     Dates: start: 20071101
  2. ARCOXIA [Concomitant]
     Dosage: 90 MG
     Route: 048
     Dates: start: 20050501, end: 20110801
  3. MEDROL [Concomitant]
     Dosage: 4 MG
     Route: 048
  4. HUMIRA [Suspect]
     Indication: PSORIATIC ARTHROPATHY
     Dosage: 80 MG, MONTHLY
     Route: 058
     Dates: start: 20050901

REACTIONS (1)
  - MALIGNANT MELANOMA [None]
